FAERS Safety Report 6683240-0 (Version None)
Quarter: 2010Q2

REPORT INFORMATION
  Report Type: 
  Country: None (occurrence: None)
  Receive Date: 20100415
  Receipt Date: 20090609
  Transmission Date: 20101027
  Serious: Yes (Hospitalization)
  Sender: FDA-Public Use
  Company Number: JP-JNJFOC-20090503930

PATIENT
  Sex: Female
  Weight: 67.8 kg

DRUGS (42)
  1. FENTANYL [Suspect]
     Indication: BACK PAIN
     Dosage: ONCE DAILY
     Route: 062
  2. FENTANYL [Suspect]
     Indication: OSTEOARTHRITIS
     Dosage: ONCE DAILY
     Route: 062
  3. FENTANYL [Suspect]
     Route: 062
  4. FENTANYL [Suspect]
     Dosage: ONCE DAILY
     Route: 062
  5. FENTANYL [Suspect]
     Dosage: ONCE DAILY
     Route: 062
  6. FENTANYL [Suspect]
     Route: 062
  7. EKSALB [Concomitant]
     Indication: DERMATITIS
     Route: 061
  8. CELECOXIB [Concomitant]
     Indication: SPINAL OSTEOARTHRITIS
     Route: 048
  9. ISALON [Concomitant]
     Indication: GASTRITIS
     Route: 048
  10. ADEFURONIC [Concomitant]
     Indication: OSTEOARTHRITIS
     Route: 054
  11. ADEFURONIC [Concomitant]
     Indication: SPINAL OSTEOARTHRITIS
     Route: 054
  12. KETOPROFEN [Concomitant]
     Indication: OSTEOARTHRITIS
     Dosage: 1 DF X 1PER 1 DAY
     Route: 062
  13. KETOPROFEN [Concomitant]
     Route: 062
  14. KETOPROFEN [Concomitant]
     Indication: SPINAL OSTEOARTHRITIS
     Dosage: 1 DF X 1PER 1 DAY
     Route: 062
  15. KETOPROFEN [Concomitant]
     Route: 062
  16. MAGNESIUM OXIDE [Concomitant]
     Indication: CONSTIPATION
     Route: 048
  17. PANTETHINE [Concomitant]
     Indication: CONSTIPATION
     Route: 048
  18. PURSENNID [Concomitant]
     Indication: CONSTIPATION
     Route: 048
  19. PRORENAL [Concomitant]
     Indication: LUMBAR SPINAL STENOSIS
     Route: 048
  20. SODIUM HYALURONATE [Concomitant]
     Indication: OSTEOARTHRITIS
     Route: 014
  21. ELCITONIN [Concomitant]
     Indication: OSTEOPOROSIS
     Route: 030
  22. WINTERMIN [Concomitant]
     Indication: SENILE PSYCHOSIS
     Route: 048
  23. WINTERMIN [Concomitant]
     Indication: DYSTHYMIC DISORDER
     Route: 048
  24. ALPRAZOLAM [Concomitant]
     Indication: SENILE PSYCHOSIS
     Route: 048
  25. ALPRAZOLAM [Concomitant]
     Indication: DYSTHYMIC DISORDER
     Route: 048
  26. TOLEDOMIN [Concomitant]
     Indication: SENILE PSYCHOSIS
     Route: 048
  27. TOLEDOMIN [Concomitant]
     Indication: DYSTHYMIC DISORDER
     Route: 048
  28. DEPAKENE [Concomitant]
     Indication: INSOMNIA
     Route: 048
  29. PARULEON [Concomitant]
     Indication: INSOMNIA
     Route: 048
  30. MYSLEE [Concomitant]
     Indication: INSOMNIA
     Route: 048
  31. VEGETAMIN-B [Concomitant]
     Indication: INSOMNIA
     Route: 048
  32. RINDERON-VG [Concomitant]
     Indication: DERMATITIS
     Route: 061
  33. NIFEDIPINE [Concomitant]
     Indication: HYPERTENSION
     Route: 048
  34. HERBESSER [Concomitant]
     Indication: HYPERTENSION
     Route: 048
  35. PARIET [Concomitant]
     Indication: REFLUX OESOPHAGITIS
     Route: 048
  36. ISOSORBIDE DINITRATE [Concomitant]
     Indication: ANGINA PECTORIS
     Route: 062
  37. TAIMEC [Concomitant]
     Indication: GASTRITIS
     Route: 048
  38. BIO-THREE [Concomitant]
     Indication: CONSTIPATION
     Route: 048
  39. BERIZYM [Concomitant]
     Indication: GASTRITIS
     Route: 048
  40. SODIUM GUALENATE [Concomitant]
     Indication: STOMATITIS
     Route: 002
  41. TIZANIDINE HCL [Concomitant]
     Indication: SPINAL OSTEOARTHRITIS
     Route: 048
  42. BAKUMONDOUTO [Concomitant]
     Indication: REFLUX OESOPHAGITIS
     Route: 048

REACTIONS (1)
  - PNEUMONIA ASPIRATION [None]
